FAERS Safety Report 4311043-0 (Version None)
Quarter: 2004Q1

REPORT INFORMATION
  Report Type: 
  Country: None (occurrence: None)
  Receive Date: 20040302
  Receipt Date: 20040219
  Transmission Date: 20041129
  Serious: Yes (Death)
  Sender: FDA-Public Use
  Company Number: 062-20785-04020536

PATIENT
  Age: 60 Year
  Sex: Male

DRUGS (1)
  1. THALIDOMIDE (THALIDOMIDE) (50 MILLIGRAM, CAPSULES) [Suspect]
     Indication: MULTIPLE SCLEROSIS
     Dosage: 200 MG, QD, ORAL
     Route: 048
     Dates: start: 20031001, end: 20040209

REACTIONS (2)
  - MALIGNANT NEOPLASM PROGRESSION [None]
  - MULTIPLE MYELOMA [None]
